FAERS Safety Report 18984461 (Version 2)
Quarter: 2021Q1

REPORT INFORMATION
  Report Type: Spontaneous
  Country: TW (occurrence: TW)
  Receive Date: 20210309
  Receipt Date: 20210310
  Transmission Date: 20210420
  Serious: Yes (Death, Hospitalization)
  Sender: FDA-Public Use
  Company Number: TW-ABBVIE-21K-153-3804447-00

PATIENT
  Age: 50 Year
  Sex: Female

DRUGS (1)
  1. MAVIRET [Suspect]
     Active Substance: GLECAPREVIR\PIBRENTASVIR
     Indication: HEPATITIS C
     Route: 048
     Dates: start: 20201217, end: 20210211

REACTIONS (4)
  - End stage renal disease [Unknown]
  - Discomfort [Fatal]
  - Fall [Unknown]
  - Fracture [Unknown]
